FAERS Safety Report 25824301 (Version 1)
Quarter: 2025Q3

REPORT INFORMATION
  Report Type: Spontaneous
  Country: US (occurrence: None)
  Receive Date: 20250918
  Receipt Date: 20250918
  Transmission Date: 20251020
  Serious: Yes (Hospitalization)
  Sender: FDA-CTU
  Company Number: None

PATIENT
  Age: 73 Year
  Sex: Female

DRUGS (7)
  1. ACYCLOVIR [Suspect]
     Active Substance: ACYCLOVIR
  2. ALLOPURINOL [Suspect]
     Active Substance: ALLOPURINOL
  3. CALCIUM [Suspect]
     Active Substance: CALCIUM
  4. PREDNISONE [Suspect]
     Active Substance: PREDNISONE
  5. OBINUTUZUMAB [Concomitant]
     Active Substance: OBINUTUZUMAB
     Dates: start: 20250912
  6. ONDANSETRON [Suspect]
     Active Substance: ONDANSETRON
  7. PROCHLORPERAZINE [Suspect]
     Active Substance: PROCHLORPERAZINE

REACTIONS (13)
  - Chest discomfort [None]
  - Dizziness [None]
  - Dyspnoea exertional [None]
  - Palpitations [None]
  - Rash [None]
  - Swollen tongue [None]
  - Nausea [None]
  - Vomiting [None]
  - Abdominal pain [None]
  - Diarrhoea [None]
  - Acute coronary syndrome [None]
  - N-terminal prohormone brain natriuretic peptide increased [None]
  - Fibrin D dimer increased [None]

NARRATIVE: CASE EVENT DATE: 20250913
